FAERS Safety Report 6300855-X (Version None)
Quarter: 2009Q3

REPORT INFORMATION
  Report Type: 
  Country: None (occurrence: None)
  Receive Date: 20090807
  Receipt Date: 20090729
  Transmission Date: 20100115
  Serious: Yes (Hospitalization)
  Sender: FDA-Public Use
  Company Number: FR-PFIZER INC-2009240373

PATIENT
  Age: 54 Year

DRUGS (14)
  1. CAMPTOSAR [Suspect]
     Indication: COLORECTAL CANCER
     Dosage: 25 MG/M2, 1X/DAY, CYCLES 1 TO 4
     Route: 042
     Dates: start: 20090311
  2. CAMPTOSAR [Suspect]
     Dosage: 300 MG/M2, CYCLE 5
     Route: 042
     Dates: start: 20090506, end: 20090506
  3. SOLU-MEDROL [Suspect]
     Indication: PROPHYLAXIS OF NAUSEA AND VOMITING
     Dosage: 60 MG/M2, CYCLES 1 TO 4
     Route: 042
     Dates: start: 20090311
  4. SOLU-MEDROL [Suspect]
     Dosage: 60 MG/M2, 1X/DAY, CYCLE 5
     Route: 042
     Dates: start: 20090506, end: 20090506
  5. FLUOROURACIL [Suspect]
     Indication: COLORECTAL CANCER
     Dosage: 3940 MG/M2, CYCLES 1 TO 4
     Route: 041
     Dates: start: 20090311
  6. FLUOROURACIL [Suspect]
     Dosage: 660 MG/M2, CYCLE 1 TO 4
     Route: 040
     Dates: start: 20090311
  7. FLUOROURACIL [Suspect]
     Dosage: 4030 MG/M2, CYCLE 5
     Route: 041
     Dates: start: 20090506, end: 20090506
  8. FLUOROURACIL [Suspect]
     Dosage: 670 MG/M2, CYCLE 5
     Route: 040
     Dates: start: 20090506, end: 20090506
  9. CALCIUM FOLINATE [Suspect]
     Indication: COLORECTAL CANCER
     Dosage: 660 MG/M2, CYCLES 1 TO 4
     Route: 042
     Dates: start: 20090311
  10. CALCIUM FOLINATE [Suspect]
     Dosage: 660 MG/M2, CYCLE 5
     Route: 042
     Dates: start: 20090506, end: 20090506
  11. AVASTIN [Suspect]
     Indication: COLORECTAL CANCER
     Dosage: 285 MG/M2, CYCLES 1 TO 4
     Route: 042
     Dates: start: 20090311
  12. AVASTIN [Suspect]
     Dosage: 285 MG/M2, CYCLE 5
     Route: 042
     Dates: start: 20090506, end: 20090506
  13. ZOPHREN [Suspect]
     Indication: PROPHYLAXIS OF NAUSEA AND VOMITING
     Dosage: 8 MG/M2, CYCLES 1 TO 4
     Route: 048
     Dates: start: 20090311
  14. ZOPHREN [Suspect]
     Dosage: 8 MG/M2, CYCLE 5
     Route: 048
     Dates: start: 20090506, end: 20090506

REACTIONS (1)
  - JUGULAR VEIN THROMBOSIS [None]
